FAERS Safety Report 5994680-7 (Version None)
Quarter: 2008Q4

REPORT INFORMATION
  Report Type: 
  Country: None (occurrence: None)
  Receive Date: 20081212
  Receipt Date: 20081203
  Transmission Date: 20090506
  Serious: Yes (Hospitalization, Other)
  Sender: FDA-Public Use
  Company Number: FR-ABBOTT-08P-056-0487354-00

PATIENT
  Sex: Female
  Weight: 70 kg

DRUGS (6)
  1. KALETRA [Suspect]
     Indication: HIV INFECTION
     Route: 048
     Dates: start: 20080530, end: 20080718
  2. KALETRA [Suspect]
     Route: 048
     Dates: start: 20080718, end: 20080829
  3. VALACYCLOVIR HCL [Concomitant]
     Indication: HERPES VIRUS INFECTION
     Route: 048
     Dates: start: 20080617, end: 20080718
  4. FLAVONOIDES EXTRACT [Concomitant]
     Indication: HAEMORRHOIDS
     Route: 048
     Dates: start: 20080530, end: 20080601
  5. ACID FOLIC [Concomitant]
     Indication: ANAEMIA PROPHYLAXIS
     Dates: start: 20080429
  6. CABERGOLINE [Concomitant]
     Indication: SUPPRESSED LACTATION
     Route: 048
     Dates: start: 20080711, end: 20080829

REACTIONS (1)
  - CHOLESTASIS OF PREGNANCY [None]
